FAERS Safety Report 4622504-9 (Version None)
Quarter: 2005Q1

REPORT INFORMATION
  Report Type: 
  Country: None (occurrence: None)
  Receive Date: 20050325
  Receipt Date: 20050325
  Transmission Date: 20050727
  Serious: Yes (Hospitalization)
  Sender: FDA-Public Use
  Company Number: None

PATIENT
  Age: 55 Year
  Sex: Male
  Weight: 73.9 kg

DRUGS (7)
  1. VANCOMYCIN HCL [Suspect]
     Dosage: 1000MG, Q12H, IV  PIGGY
     Route: 042
     Dates: start: 20041108, end: 20041108
  2. SULFAMETHOXAZOLE 800/TRIMETHOPRIM [Concomitant]
  3. ZYPREXA [Concomitant]
  4. LOPINAVIR/RITONAVIR [Concomitant]
  5. TENOFOVIR DISOPROXIL FUMARATE (VIREAD) [Concomitant]
  6. LAMIVUDINE AND ZIDOVUDINE [Concomitant]
  7. ACETAMINOPHEN [Concomitant]

REACTIONS (2)
  - ANAPHYLACTIC REACTION [None]
  - CONVULSION [None]
